FAERS Safety Report 6732538-6 (Version None)
Quarter: 2010Q2

REPORT INFORMATION
  Report Type: 
  Country: None (occurrence: None)
  Receive Date: 20100519
  Receipt Date: 20100512
  Transmission Date: 20101027
  Serious: Yes (Other)
  Sender: FDA-Public Use
  Company Number: US-BAYER-201022419NA

PATIENT
  Sex: Female

DRUGS (1)
  1. YASMIN [Suspect]
     Indication: DRUG USE FOR UNKNOWN INDICATION
     Route: 048
     Dates: start: 20030201, end: 20050901

REACTIONS (3)
  - DEEP VEIN THROMBOSIS [None]
  - GALLBLADDER DISORDER [None]
  - PULMONARY EMBOLISM [None]
